FAERS Safety Report 6540335-X (Version None)
Quarter: 2010Q1

REPORT INFORMATION
  Report Type: 
  Country: None (occurrence: None)
  Receive Date: 20100115
  Receipt Date: 20100108
  Transmission Date: 20100710
  Serious: Yes (Hospitalization, Other)
  Sender: FDA-Public Use
  Company Number: PHHO2009US16307

PATIENT
  Sex: Male
  Weight: 90.9 kg

DRUGS (4)
  1. AFINITOR [Suspect]
     Indication: PANCREATIC NEUROENDOCRINE TUMOUR
     Dosage: DOUBLE-BLIND (PLACEBO)
     Route: 048
     Dates: start: 20080109
  2. BLINDED NO TREATMENT RECEIVED NOMED [Suspect]
     Indication: PANCREATIC NEUROENDOCRINE TUMOUR
     Dosage: DOUBLE-BLIND (PLACEBO)
     Route: 048
     Dates: start: 20080109
  3. BLINDED PLACEBO COMP-PLA+ [Suspect]
     Indication: PANCREATIC NEUROENDOCRINE TUMOUR
     Dosage: DOUBLE-BLIND (PLACEBO)
     Route: 048
     Dates: start: 20080109
  4. RAD001 [Suspect]
     Indication: PANCREATIC NEUROENDOCRINE TUMOUR
     Dosage: OPEN LABEL
     Route: 048
     Dates: start: 20090505

REACTIONS (6)
  - ENDOTRACHEAL INTUBATION [None]
  - MALIGNANT NEOPLASM PROGRESSION [None]
  - PYREXIA [None]
  - ROCKY MOUNTAIN SPOTTED FEVER [None]
  - SUPRAVENTRICULAR TACHYCARDIA [None]
  - TACHYPNOEA [None]
